FAERS Safety Report 6068706-9 (Version None)
Quarter: 2009Q1

REPORT INFORMATION
  Report Type: 
  Country: None (occurrence: None)
  Receive Date: 20090206
  Receipt Date: 20090130
  Transmission Date: 20090719
  Serious: Yes (Other)
  Sender: FDA-Public Use
  Company Number: B0556692A

PATIENT
  Age: 3 Year
  Sex: Female

DRUGS (1)
  1. ALKERAN [Suspect]
     Indication: DRUG USE FOR UNKNOWN INDICATION
     Route: 042

REACTIONS (3)
  - CLOSTRIDIUM DIFFICILE COLITIS [None]
  - CYTOMEGALOVIRUS INFECTION [None]
  - PERICARDIAL EFFUSION [None]
